FAERS Safety Report 4382447-5 (Version None)
Quarter: 2004Q2

REPORT INFORMATION
  Report Type: 
  Country: None (occurrence: None)
  Receive Date: 20040622
  Receipt Date: 20040617
  Transmission Date: 20050107
  Serious: Yes (Death, Other)
  Sender: FDA-Public Use
  Company Number: 200411878EU

PATIENT
  Age: 80 Year
  Sex: Male

DRUGS (7)
  1. CLEXANE [Suspect]
     Indication: THROMBOPHLEBITIS
     Route: 058
     Dates: start: 20040207, end: 20040309
  2. CEFEPIME [Suspect]
     Indication: BRONCHITIS CHRONIC
     Dates: start: 20040210, end: 20040218
  3. OMEPRAZOLE [Suspect]
     Dates: start: 20040207, end: 20040317
  4. SERTRALINE HCL [Suspect]
     Route: 048
     Dates: start: 20040210
  5. ACETAMINOPHEN [Suspect]
     Dates: start: 20040207, end: 20040223
  6. AMLODIPINE [Suspect]
     Dates: start: 20040207, end: 20040223
  7. CEFTAZIDIME [Concomitant]
     Indication: BRONCHITIS CHRONIC
     Dates: start: 20040207, end: 20040210

REACTIONS (2)
  - DEATH [None]
  - THROMBOCYTOPENIA [None]
